FAERS Safety Report 12173433 (Version 3)
Quarter: 2016Q1

REPORT INFORMATION
  Report Type: Spontaneous
  Country: US (occurrence: US)
  Receive Date: 20160311
  Receipt Date: 20160317
  Transmission Date: 20160526
  Serious: No
  Sender: FDA-Public Use
  Company Number: US-GALDERMA-US15007045

PATIENT
  Age: 54 Year
  Sex: Female

DRUGS (11)
  1. NEUTROGENA SPF 80+ [Concomitant]
     Indication: PROPHYLAXIS AGAINST SOLAR RADIATION
     Route: 061
     Dates: start: 20150828
  2. DIOVAN [Concomitant]
     Active Substance: VALSARTAN
  3. VITAMIN B COMPLEX D3 [Concomitant]
  4. TRI-LUMA [Suspect]
     Active Substance: FLUOCINOLONE ACETONIDE\HYDROQUINONE\TRETINOIN
     Indication: PIGMENTATION DISORDER
     Route: 061
     Dates: start: 201405, end: 201407
  5. TRI-LUMA [Suspect]
     Active Substance: FLUOCINOLONE ACETONIDE\HYDROQUINONE\TRETINOIN
     Indication: PIGMENTATION DISORDER
     Route: 061
     Dates: start: 20150825
  6. SUNSCREEN 85+ [Concomitant]
     Route: 061
  7. OIL OF OLAY MOISTURIZER [Concomitant]
     Indication: DRY SKIN PROPHYLAXIS
     Route: 061
  8. PREDNISONE. [Concomitant]
     Active Substance: PREDNISONE
     Dates: start: 1999
  9. CERAVE FOAMING FACIAL CLEANSER [Concomitant]
     Active Substance: OCTINOXATE\TITANIUM DIOXIDE\ZINC OXIDE
     Route: 061
  10. PEAR SOAP [Concomitant]
     Indication: THERAPEUTIC SKIN CARE TOPICAL
     Route: 061
  11. EUCERIN FACE CREAM [Concomitant]
     Route: 061

REACTIONS (4)
  - Skin exfoliation [Recovered/Resolved]
  - Drug ineffective [Not Recovered/Not Resolved]
  - Dry skin [Recovered/Resolved]
  - Pigmentation disorder [Not Recovered/Not Resolved]

NARRATIVE: CASE EVENT DATE: 2014
